FAERS Safety Report 9560780 (Version 2)
Quarter: 2014Q3

REPORT INFORMATION
  Report Type: Spontaneous
  Country: US (occurrence: US)
  Receive Date: 20130927
  Receipt Date: 20140722
  Transmission Date: 20150326
  Serious: No
  Sender: FDA-Public Use
  Company Number: US-BIOGENIDEC-2013BI054074

PATIENT
  Sex: Male

DRUGS (2)
  1. TECFIDERA [Suspect]
     Active Substance: DIMETHYL FUMARATE
     Indication: MULTIPLE SCLEROSIS
     Dates: start: 20130521
  2. TECFIDERA [Suspect]
     Active Substance: DIMETHYL FUMARATE
     Indication: MULTIPLE SCLEROSIS
     Dates: start: 20140520

REACTIONS (16)
  - Fatigue [Not Recovered/Not Resolved]
  - Neck pain [Unknown]
  - Flushing [Not Recovered/Not Resolved]
  - Dyspepsia [Unknown]
  - Influenza like illness [Not Recovered/Not Resolved]
  - Headache [Unknown]
  - Abdominal pain upper [Recovered/Resolved]
  - Pyrexia [Unknown]
  - Decreased appetite [Not Recovered/Not Resolved]
  - Oropharyngeal pain [Unknown]
  - Pallor [Not Recovered/Not Resolved]
  - Rash [Unknown]
  - Ear pain [Unknown]
  - Frequent bowel movements [Unknown]
  - Asthenia [Unknown]
  - Pruritus [Unknown]

NARRATIVE: CASE EVENT DATE: 2013
